FAERS Safety Report 7717122-X (Version None)
Quarter: 2011Q3

REPORT INFORMATION
  Report Type: 
  Country: None (occurrence: None)
  Receive Date: 20110826
  Receipt Date: 20110826
  Transmission Date: 20111222
  Serious: Yes (Hospitalization)
  Sender: FDA-Public Use
  Company Number: None

PATIENT
  Age: 94 Year
  Sex: Male
  Weight: 71.7 kg

DRUGS (2)
  1. ENOXAPARIN [Suspect]
     Indication: ANGINA UNSTABLE
     Dosage: 80 MG BID SQ
     Route: 058
     Dates: start: 20110224, end: 20110227
  2. WARFARIN SODIUM [Suspect]
     Indication: ATRIAL FIBRILLATION
     Dosage: MG EVERY DAY PO
     Route: 048
     Dates: start: 20090720, end: 20110224

REACTIONS (1)
  - HAEMORRHAGE [None]
